FAERS Safety Report 24803878 (Version 1)
Quarter: 2025Q1

REPORT INFORMATION
  Report Type: Spontaneous
  Country: DE (occurrence: DE)
  Receive Date: 20250103
  Receipt Date: 20250103
  Transmission Date: 20250409
  Serious: Yes (Life-Threatening, Hospitalization, Other)
  Sender: TORRENT PHARMA INC.
  Company Number: None

PATIENT
  Age: 55 Year
  Sex: Male

DRUGS (15)
  1. CLINDAMYCIN [Interacting]
     Active Substance: CLINDAMYCIN
     Indication: Wound infection staphylococcal
     Dosage: 1-1-1, 1800 MG EVERY DAYS
     Route: 048
  2. METAMIZOLE [Interacting]
     Active Substance: METAMIZOLE
     Indication: Pain
     Dosage: DOSE: 2-2-2-2
     Route: 048
  3. AMLODIPINE [Interacting]
     Active Substance: AMLODIPINE BESYLATE
     Indication: Hypertension
     Route: 048
  4. ASPIRIN [Interacting]
     Active Substance: ASPIRIN
     Indication: Thrombosis prophylaxis
     Dosage: 100 MG, QD
     Route: 048
  5. PHENPROCOUMON [Interacting]
     Active Substance: PHENPROCOUMON
     Indication: Thrombosis prophylaxis
     Dosage: DAILY DOSE: 3 MG MILLGRAM(S) EVERY WEEKS, 7 TABLETS
     Route: 048
  6. ATORVASTATIN [Concomitant]
     Active Substance: ATORVASTATIN
     Indication: Hyperlipidaemia
     Route: 048
  7. DOXAZOSIN [Concomitant]
     Active Substance: DOXAZOSIN MESYLATE
     Indication: Hypertension
     Route: 048
  8. Indacaterol/glycopyrronium [Concomitant]
     Indication: Chronic obstructive pulmonary disease
     Route: 050
  9. INHALERIN [Concomitant]
     Indication: Product used for unknown indication
     Route: 065
  10. METFORMIN [Concomitant]
     Active Substance: METFORMIN HYDROCHLORIDE
     Indication: Type 2 diabetes mellitus
     Route: 048
  11. METOPROLOL [Concomitant]
     Active Substance: METOPROLOL
     Indication: Hypertension
     Route: 048
  12. NALOXONE HYDROCHLORIDE\OXYCODONE HYDROCHLORIDE [Concomitant]
     Active Substance: NALOXONE HYDROCHLORIDE\OXYCODONE HYDROCHLORIDE
     Indication: Pain
     Route: 048
  13. PREGABALIN [Concomitant]
     Active Substance: PREGABALIN
     Indication: Product used for unknown indication
     Route: 048
  14. RAMIPRIL [Concomitant]
     Active Substance: RAMIPRIL
     Indication: Hypertension
     Route: 048
  15. SITAGLIPTIN [Concomitant]
     Active Substance: SITAGLIPTIN
     Indication: Type 2 diabetes mellitus
     Route: 048

REACTIONS (4)
  - Drug interaction [Recovering/Resolving]
  - Labelled drug-drug interaction medication error [Unknown]
  - International normalised ratio increased [Recovered/Resolved]
  - Epistaxis [Recovering/Resolving]
